FAERS Safety Report 6757240-6 (Version None)
Quarter: 2010Q2

REPORT INFORMATION
  Report Type: 
  Country: None (occurrence: None)
  Receive Date: 20100607
  Receipt Date: 20100525
  Transmission Date: 20101027
  Serious: No
  Sender: FDA-Public Use
  Company Number: US-BIOGENIDEC-2010BI013032

PATIENT
  Sex: Female

DRUGS (1)
  1. TYSABRI [Suspect]
     Indication: MULTIPLE SCLEROSIS
     Route: 042
     Dates: start: 20091214, end: 20100415

REACTIONS (5)
  - DRUG SPECIFIC ANTIBODY PRESENT [None]
  - FATIGUE [None]
  - HEADACHE [None]
  - MENINGITIS ASEPTIC [None]
  - RASH [None]
